FAERS Safety Report 25487857 (Version 2)
Quarter: 2025Q4

REPORT INFORMATION
  Report Type: Spontaneous
  Country: EU (occurrence: EU)
  Receive Date: 20250627
  Receipt Date: 20251223
  Transmission Date: 20260118
  Serious: Yes (Other)
  Sender: ROCHE
  Company Number: None

PATIENT
  Age: 37 Year
  Sex: Male

DRUGS (13)
  1. MYCOPHENOLATE MOFETIL [Suspect]
     Active Substance: MYCOPHENOLATE MOFETIL
     Indication: Prophylaxis against graft versus host disease
     Dosage: 3 MG/KG 3 DAYS BEFORE DUCBT AND 1 MONTH AFTER
  2. FLUDARABINE [Suspect]
     Active Substance: FLUDARABINE PHOSPHATE
     Indication: Cord blood transplant therapy
     Route: 042
  3. FLUDARABINE [Suspect]
     Active Substance: FLUDARABINE PHOSPHATE
     Indication: Bone marrow conditioning regimen
  4. CYCLOSPORINE [Suspect]
     Active Substance: CYCLOSPORINE
     Indication: Prophylaxis against graft versus host disease
     Route: 042
  5. THIOTEPA [Suspect]
     Active Substance: THIOTEPA
     Indication: Cord blood transplant therapy
     Route: 042
  6. THIOTEPA [Suspect]
     Active Substance: THIOTEPA
     Indication: Neoplasm malignant
  7. BUSULFAN [Suspect]
     Active Substance: BUSULFAN
     Indication: Cord blood transplant therapy
     Route: 042
  8. BUSULFAN [Suspect]
     Active Substance: BUSULFAN
     Indication: Bone marrow conditioning regimen
  9. THYMOGLOBULIN [Suspect]
     Active Substance: LAPINE T-LYMPHOCYTE IMMUNE GLOBULIN
     Indication: Cord blood transplant therapy
     Route: 042
  10. THYMOGLOBULIN [Suspect]
     Active Substance: LAPINE T-LYMPHOCYTE IMMUNE GLOBULIN
     Indication: Bone marrow conditioning regimen
  11. VINORELBINE [Suspect]
     Active Substance: VINORELBINE TARTRATE
     Indication: Hodgkin^s disease
     Dosage: ON DAYS 1 AND 8 EVERY 21 DAYS
     Route: 042
  12. GEMCITABINE [Suspect]
     Active Substance: GEMCITABINE
     Indication: Hodgkin^s disease
     Dosage: ON DAYS 1 AND 8 EVERY 21 DAY
     Route: 042
  13. DOXORUBICIN [Suspect]
     Active Substance: DOXORUBICIN
     Indication: Hodgkin^s disease
     Dosage: ON DAYS 1 AND 8 EVERY 21 DAYS
     Route: 042

REACTIONS (6)
  - Neck pain [Unknown]
  - Thrombocytopenia [Recovered/Resolved]
  - Retinopathy haemorrhagic [Recovered/Resolved]
  - Hyperfibrinogenaemia [Unknown]
  - Headache [Unknown]
  - Visual field defect [Unknown]
